FAERS Safety Report 26011325 (Version 2)
Quarter: 2025Q4

REPORT INFORMATION
  Report Type: Spontaneous
  Country: NZ (occurrence: NZ)
  Receive Date: 20251107
  Receipt Date: 20251107
  Transmission Date: 20260118
  Serious: Yes (Other)
  Sender: SANDOZ
  Company Number: NZ-SANDOZ-SDZ2025NZ082601

PATIENT
  Sex: Female

DRUGS (1)
  1. ESTRADIOL [Suspect]
     Active Substance: ESTRADIOL
     Indication: Product used for unknown indication
     Dosage: UNK,STRENGTH 100MCG
     Route: 062

REACTIONS (4)
  - Arrhythmia [Unknown]
  - Symptom recurrence [Unknown]
  - Arthralgia [Unknown]
  - Anxiety [Unknown]
